FAERS Safety Report 7822753-2 (Version None)
Quarter: 2011Q4

REPORT INFORMATION
  Report Type: 
  Country: None (occurrence: None)
  Receive Date: 20111018
  Receipt Date: 20111012
  Transmission Date: 20120403
  Serious: Yes (Hospitalization)
  Sender: FDA-Public Use
  Company Number: US-AMGEN-USASP2011052855

PATIENT
  Age: 53 Year
  Sex: Female

DRUGS (2)
  1. ENBREL [Suspect]
     Indication: RHEUMATOID ARTHRITIS
     Dosage: 50 MG, QWK
     Dates: start: 20100304, end: 20110101
  2. TREXALL [Concomitant]
     Dosage: UNK
     Dates: start: 20100301

REACTIONS (6)
  - PERIPHERAL VASCULAR DISORDER [None]
  - LOCALISED INFECTION [None]
  - JOINT DESTRUCTION [None]
  - ARTHRITIS [None]
  - INCISION SITE COMPLICATION [None]
  - TOE AMPUTATION [None]
